FAERS Safety Report 8325590-8 (Version None)
Quarter: 2012Q2

REPORT INFORMATION
  Report Type: 
  Country: None (occurrence: None)
  Receive Date: 20120501
  Receipt Date: 20120419
  Transmission Date: 20120825
  Serious: Yes (Disabling)
  Sender: FDA-Public Use
  Company Number: PHHY2012EC011846

PATIENT
  Sex: Female

DRUGS (2)
  1. DIOVAN [Suspect]
     Indication: HYPERTENSION
     Dosage: 1 DF (320 MG VALSARTAN), DAILY
     Route: 048
     Dates: start: 20080918, end: 20090127
  2. DIOVAN HCT [Suspect]
     Indication: HYPERTENSION
     Dosage: 1 DF (80MG VALSARTAN/ 12.5 MG HYDROCHLOROTHIAZIDE) DAILY
     Route: 048
     Dates: start: 20090128

REACTIONS (2)
  - PATELLA FRACTURE [None]
  - JOINT INJURY [None]
